FAERS Safety Report 7314766-4 (Version None)
Quarter: 2011Q1

REPORT INFORMATION
  Report Type: 
  Country: None (occurrence: None)
  Receive Date: 20110225
  Receipt Date: 20101130
  Transmission Date: 20110831
  Serious: No
  Sender: FDA-Public Use
  Company Number: US-MYLANLABS-2010S1022035

PATIENT
  Age: 35 Year
  Sex: Female

DRUGS (2)
  1. AMNESTEEM [Suspect]
     Indication: ACNE
     Route: 048
     Dates: start: 20101101, end: 20101124
  2. CLARAVIS [Suspect]
     Indication: ACNE
     Route: 048
     Dates: start: 20100901, end: 20101001

REACTIONS (5)
  - TACHYPHRENIA [None]
  - INSOMNIA [None]
  - DRUG INEFFECTIVE [None]
  - ACNE [None]
  - ARTHRALGIA [None]
